FAERS Safety Report 18985673 (Version 1)
Quarter: 2021Q1

REPORT INFORMATION
  Report Type: Spontaneous
  Country: NL (occurrence: NL)
  Receive Date: 20210309
  Receipt Date: 20210309
  Transmission Date: 20210420
  Serious: Yes (Other)
  Sender: FDA-Public Use
  Company Number: NL-TEVA-2021-NL-1887372

PATIENT
  Age: 51 Year
  Sex: Female
  Weight: 62 kg

DRUGS (4)
  1. ABILIFY [Suspect]
     Active Substance: ARIPIPRAZOLE
     Indication: SCHIZOPHRENIA
     Dosage: 20 MG TWICE A DAY; UNIT DOSE : 40 MG
     Dates: start: 2009
  2. EFFEXOR [Suspect]
     Active Substance: VENLAFAXINE HYDROCHLORIDE
     Indication: DEPRESSION
     Dosage: 150 MG TWICE A DAY; THERAPY END DATE : ASKED BUT UNKNOWN; UNIT DOSE: 300 MG
     Dates: start: 2005
  3. METFORMINE TABLET MGA 1000MG / BRAND NAME NOT SPECIFIED [Concomitant]
     Active Substance: METFORMIN HYDROCHLORIDE
     Indication: DIABETES MELLITUS
     Dosage: 100 MG (MILLIGRAM); THERAPY START DATE; THERAPY END DATE : ASKED BUT UNKNOWN
  4. CLOZAPINE TABLET 100MG / BRAND NAME NOT SPECIFIED [Suspect]
     Active Substance: CLOZAPINE
     Indication: SCHIZOPHRENIA
     Dosage: 600 MILLIGRAM DAILY; ONCE A DAY 6 PIECES THERAPY END DATE : ASKED BUT UNKNOWN
     Dates: start: 1993

REACTIONS (8)
  - Hallucination [Not Recovered/Not Resolved]
  - Diabetes mellitus [Recovered/Resolved]
  - Fear [Not Recovered/Not Resolved]
  - Psychotic symptom [Not Recovered/Not Resolved]
  - Depressive symptom [Not Recovered/Not Resolved]
  - Weight increased [Recovered/Resolved]
  - Suspiciousness [Not Recovered/Not Resolved]
  - Depersonalisation/derealisation disorder [Not Recovered/Not Resolved]

NARRATIVE: CASE EVENT DATE: 2010
